FAERS Safety Report 4430722-8 (Version None)
Quarter: 2004Q3

REPORT INFORMATION
  Report Type: 
  Country: None (occurrence: None)
  Receive Date: 20040819
  Receipt Date: 20040819
  Transmission Date: 20050211
  Serious: Yes (Other)
  Sender: FDA-Public Use
  Company Number: None

PATIENT
  Age: 61 Year
  Sex: Female

DRUGS (5)
  1. LISINOPRIL [Suspect]
     Indication: HYPERTENSION
     Dosage: 10MG QD ORAL
     Route: 048
     Dates: start: 20020820, end: 20040709
  2. ESTROGEN [Concomitant]
  3. ALBUTEROL [Concomitant]
  4. TOBRAMYCIN EYE DROPS [Concomitant]
  5. TACROLIMUS TOPICAL OINT [Concomitant]

REACTIONS (2)
  - LICHEN PLANUS [None]
  - VULVAL ULCERATION [None]
